FAERS Safety Report 19890897 (Version 1)
Quarter: 2021Q3

REPORT INFORMATION
  Report Type: Report from Study
  Country: IT (occurrence: IT)
  Receive Date: 20210928
  Receipt Date: 20210928
  Transmission Date: 20211014
  Serious: Yes (Life-Threatening, Other)
  Sender: FDA-Public Use
  Company Number: IT-PFIZER INC-202101272678

PATIENT
  Age: 41 Year
  Sex: Female

DRUGS (3)
  1. TRASTUZUMAB. [Suspect]
     Active Substance: TRASTUZUMAB
     Indication: HER2 POSITIVE BREAST CANCER
     Dosage: UNK
  2. TRIPTORELIN [Concomitant]
     Active Substance: TRIPTORELIN
     Dosage: UNK
  3. TAMOXIFEN [Concomitant]
     Active Substance: TAMOXIFEN
     Dosage: UNK

REACTIONS (1)
  - Cardiac failure [Recovering/Resolving]
